FAERS Safety Report 20392065 (Version 2)
Quarter: 2022Q1

REPORT INFORMATION
  Report Type: Report from Study
  Country: DE (occurrence: None)
  Receive Date: 20220128
  Receipt Date: 20220209
  Transmission Date: 20220424
  Serious: Yes (Hospitalization)
  Sender: FDA-Public Use
  Company Number: DE-ROCHE-2951328

PATIENT
  Age: 66 Year
  Sex: Male
  Weight: 75 kg

DRUGS (4)
  1. OBINUTUZUMAB [Suspect]
     Active Substance: OBINUTUZUMAB
     Indication: Follicular lymphoma
     Dosage: DATE OF MOST RECENT DOSE OF OBINUTUZUMAB PRIOR TO AE ONSET: 26/AUG/2021??ON 30/NOV/2021, RECEIVED MO
     Route: 041
     Dates: start: 20210504, end: 20211130
  2. COPANLISIB [Suspect]
     Active Substance: COPANLISIB
     Indication: Follicular lymphoma
     Dosage: DATE OF MOST RECENT DOSE OF COPANLISIB PRIOR TO AE ONSET: 09/SEP/2021?ON 28/DEC/2021, RECEIVED MOST
     Route: 041
     Dates: start: 20210504, end: 20211228
  3. ACYCLOVIR [Concomitant]
     Active Substance: ACYCLOVIR
     Dates: start: 20210504
  4. SPASMEX (GERMANY) [Concomitant]
     Dates: start: 202108

REACTIONS (3)
  - Urinary tract infection bacterial [Recovered/Resolved]
  - Urosepsis [Recovered/Resolved]
  - Device occlusion [Recovered/Resolved]

NARRATIVE: CASE EVENT DATE: 20210922
